FAERS Safety Report 8357173-8 (Version None)
Quarter: 2012Q2

REPORT INFORMATION
  Report Type: 
  Country: None (occurrence: None)
  Receive Date: 20120514
  Receipt Date: 20120510
  Transmission Date: 20120825
  Serious: Yes (Other)
  Sender: FDA-Public Use
  Company Number: US-PFIZER INC-2012088234

PATIENT
  Age: 20 Year
  Sex: Female

DRUGS (4)
  1. ZOLOFT [Suspect]
     Dosage: 50 MG, UNK
  2. LATUDA [Suspect]
     Dosage: 20 MG, 1X/DAY AT BEDTIME
     Route: 048
  3. LATUDA [Suspect]
     Dosage: 40 MG, 1X/DAY AFTER DINNER
     Route: 048
  4. ZOLOFT [Suspect]
     Dosage: 25 MG, UNK

REACTIONS (4)
  - NIGHT SWEATS [None]
  - MUSCULOSKELETAL STIFFNESS [None]
  - KIDNEY INFECTION [None]
  - PYREXIA [None]
